FAERS Safety Report 4718254-0 (Version None)
Quarter: 2005Q3

REPORT INFORMATION
  Report Type: 
  Country: None (occurrence: None)
  Receive Date: 20050718
  Receipt Date: 20050718
  Transmission Date: 20060218
  Serious: Yes (Death)
  Sender: FDA-Public Use
  Company Number: None

PATIENT
  Age: 14 Year
  Sex: Female
  Weight: 65.7716 kg

DRUGS (2)
  1. EFFEXOR XR [Suspect]
     Indication: DEPRESSION
     Dosage: 150MG DAILY ORAL
     Route: 048
     Dates: start: 20030206, end: 20030219
  2. CELEXA [Suspect]
     Indication: DEPRESSION
     Dosage: 20MG DAILY ORAL
     Route: 048
     Dates: start: 20020831, end: 20020928

REACTIONS (10)
  - ABNORMAL BEHAVIOUR [None]
  - AGITATION [None]
  - AKATHISIA [None]
  - ANGER [None]
  - COMPLETED SUICIDE [None]
  - INSOMNIA [None]
  - MANIA [None]
  - SCHIZOPHRENIA [None]
  - SUICIDAL IDEATION [None]
  - SUICIDE ATTEMPT [None]
